FAERS Safety Report 20137887 (Version 1)
Quarter: 2021Q4

REPORT INFORMATION
  Report Type: Spontaneous
  Country: IR (occurrence: IR)
  Receive Date: 20211202
  Receipt Date: 20211202
  Transmission Date: 20220303
  Serious: Yes (Other)
  Sender: FDA-Public Use
  Company Number: IR-CIPLA LTD.-2021IR07762

PATIENT

DRUGS (3)
  1. BLEOMYCIN SULFATE [Suspect]
     Active Substance: BLEOMYCIN SULFATE
     Indication: Ovarian germ cell teratoma stage II
     Dosage: 30 UNITS ON DAYS 1, 8, 15
     Route: 065
  2. ETOPOSIDE [Suspect]
     Active Substance: ETOPOSIDE
     Indication: Ovarian germ cell teratoma stage II
     Dosage: 100 MG/M2 ON DAYS 1 TO 5, EVERY 3 WEEKS
     Route: 065
  3. CISPLATIN [Suspect]
     Active Substance: CISPLATIN
     Indication: Ovarian germ cell teratoma stage II
     Dosage: 20 MG/M2 ON DAYS 1 TO 5, EVERY 3 WEEKS
     Route: 065

REACTIONS (4)
  - Eclampsia [Unknown]
  - Premature delivery [Unknown]
  - Gestational hypertension [Unknown]
  - Exposure during pregnancy [Unknown]
